FAERS Safety Report 14322842 (Version 5)
Quarter: 2019Q1

REPORT INFORMATION
  Report Type: Report from Study
  Country: None (occurrence: US)
  Receive Date: 20171226
  Receipt Date: 20190121
  Transmission Date: 20190417
  Serious: Yes (Hospitalization, Other)
  Sender: FDA-Public Use
  Company Number: US-ABBVIE-17K-163-2202517-00

PATIENT
  Age: 68 Year
  Sex: Female

DRUGS (7)
  1. WELLBUTRIN [Concomitant]
     Active Substance: BUPROPION HYDROCHLORIDE
     Indication: PRODUCT USED FOR UNKNOWN INDICATION
     Dosage: 150 MG
  2. CLONAZEPAM. [Concomitant]
     Active Substance: CLONAZEPAM
     Indication: PRODUCT USED FOR UNKNOWN INDICATION
     Dosage: 1 MG
  3. LEVOTHYROXINE. [Concomitant]
     Active Substance: LEVOTHYROXINE
     Indication: PRODUCT USED FOR UNKNOWN INDICATION
     Dosage: 50 MCG
  4. HUMIRA [Suspect]
     Active Substance: ADALIMUMAB
     Indication: RHEUMATOID ARTHRITIS
     Route: 058
  5. HUMIRA [Suspect]
     Active Substance: ADALIMUMAB
     Indication: CROHN^S DISEASE
     Route: 058
     Dates: start: 2010
  6. LOSARTAN. [Concomitant]
     Active Substance: LOSARTAN
     Indication: PRODUCT USED FOR UNKNOWN INDICATION
     Dosage: 100/25 MG
  7. PREDNISONE. [Concomitant]
     Active Substance: PREDNISONE
     Indication: PRODUCT USED FOR UNKNOWN INDICATION
     Dosage: 20 MG, AS NEEDED

REACTIONS (21)
  - Abdominal pain upper [Recovered/Resolved]
  - Abdominal adhesions [Unknown]
  - Diarrhoea [Recovering/Resolving]
  - Drug effect incomplete [Unknown]
  - Fatigue [Not Recovered/Not Resolved]
  - Gastroenteritis viral [Recovering/Resolving]
  - Large intestinal obstruction [Recovered/Resolved]
  - Gait inability [Unknown]
  - Abdominal distension [Recovering/Resolving]
  - Arthritis [Unknown]
  - Influenza [Recovered/Resolved]
  - Vomiting [Recovering/Resolving]
  - Intestinal obstruction [Recovered/Resolved]
  - Abdominal pain upper [Recovering/Resolving]
  - Intestinal obstruction [Unknown]
  - Pain [Unknown]
  - Food poisoning [Unknown]
  - Crohn^s disease [Recovering/Resolving]
  - Vomiting [Recovered/Resolved]
  - Peripheral swelling [Recovered/Resolved]
  - Gastroenteritis viral [Recovered/Resolved]

NARRATIVE: CASE EVENT DATE: 201507
